FAERS Safety Report 23311070 (Version 1)
Quarter: 2023Q4

REPORT INFORMATION
  Report Type: Report from Study
  Country: US (occurrence: US)
  Receive Date: 20231218
  Receipt Date: 20231218
  Transmission Date: 20240110
  Serious: Yes (Other)
  Sender: FDA-Public Use
  Company Number: US-ABBVIE-5531246

PATIENT
  Sex: Female
  Weight: 94 kg

DRUGS (21)
  1. HUMIRA [Suspect]
     Active Substance: ADALIMUMAB
     Indication: Rheumatoid arthritis
     Dosage: 40MG/0.4ML KIT?ADMINISTER 0.4 ML SUBCUTANEOUSLY EVERY 14 DAYS
     Route: 058
     Dates: start: 20220416
  2. TENORMIN [Concomitant]
     Active Substance: ATENOLOL
     Indication: Product used for unknown indication
     Dosage: 50MG TAB?TAKE ONE TAB BY MOUTH DAILY
     Route: 048
  3. LIPITOR [Concomitant]
     Active Substance: ATORVASTATIN CALCIUM
     Indication: Product used for unknown indication
     Dosage: 40MG TAB?TAKE ONE TAB BY MOUTH DAILY
     Route: 048
  4. CINNAMON [Concomitant]
     Active Substance: CINNAMON
     Indication: Product used for unknown indication
     Dosage: TAKE BY MOUTH DAILY
     Route: 048
  5. FLEXERIL [Concomitant]
     Active Substance: CYCLOBENZAPRINE HYDROCHLORIDE
     Indication: Fibromyalgia
     Dosage: TIME INTERVAL: 0.33333333 DAYS: 10MG TAB?TAKE 1 TABLET BY MOUTH THREE TIMES A DAY AS NEEDED
     Route: 048
  6. SOLARAZE [Concomitant]
     Active Substance: DICLOFENAC SODIUM
     Indication: Product used for unknown indication
     Dosage: 3% TOPICAL GEL?2 G TO AFFECTED AREA(S) FOUR TIMES DAILY AS NEEDED
  7. DICLOFENAC [Concomitant]
     Active Substance: DICLOFENAC
     Indication: Product used for unknown indication
     Dosage: ENTERIC COATED 75MG TAB?TAKE ONE TAB BY MOUTH TWICE DAILY AS NEEDED
     Route: 048
  8. ECHINACEA [Concomitant]
     Active Substance: ECHINACEA, UNSPECIFIED
     Indication: Product used for unknown indication
     Dosage: TAKE BY MOUTH TAKE 2 ONCE DAILY
     Route: 048
  9. NEURONTIN [Concomitant]
     Active Substance: GABAPENTIN
     Indication: Product used for unknown indication
     Dosage: 600MG TAB??TAKE BY MOUTH. 2 TABLETS TID
     Route: 048
  10. PLAQUENIL [Concomitant]
     Active Substance: HYDROXYCHLOROQUINE SULFATE
     Indication: Rheumatoid arthritis
     Dosage: 200 MG TAB?TAKE ONE TAB BY MOUTH TWICE DAILY
     Route: 048
  11. LEVONORGESTREL AND ETHINYL ESTRADIOL [Concomitant]
     Active Substance: ETHINYL ESTRADIOL\LEVONORGESTREL
     Indication: Product used for unknown indication
     Dosage: 0.1-20 MG-MCG TAB ?TAKE ONE TAB BY MOUTH DAILY
     Route: 048
  12. SYNTHROID [Concomitant]
     Active Substance: LEVOTHYROXINE SODIUM
     Indication: Hypothyroidism
     Dosage: 150MCG TAB?TAKE ONE TAB BY MOUTH DAILY MON-SAT AND 2 TABS ON SUNDAY
  13. MAGNESIUM CITRATE [Concomitant]
     Active Substance: MAGNESIUM CITRATE
     Indication: Product used for unknown indication
     Dosage: 100 MG TABS ?TAKE BY MOUTH DAILY
     Route: 048
  14. GLUCOPHAGE [Concomitant]
     Active Substance: METFORMIN HYDROCHLORIDE
     Indication: Product used for unknown indication
     Dosage: 500MG TAB?TAKE ONE TAB BY MOUTH TWICE DAILY WITH BREAKFAST AND DINNER
     Route: 048
  15. PRILOSEC [Concomitant]
     Active Substance: OMEPRAZOLE MAGNESIUM
     Indication: Product used for unknown indication
     Dosage: 20 MG TAB?TAKE ONE TAB BY MOUTH DAILY
     Route: 048
  16. PEPCID [Concomitant]
     Active Substance: FAMOTIDINE
     Indication: Product used for unknown indication
     Dosage: PO TAKE BY MOUTH
     Route: 048
  17. ULTRAM [Concomitant]
     Active Substance: TRAMADOL HYDROCHLORIDE
     Indication: Product used for unknown indication
     Dosage: 50MG TAB?TAKE BY MOUTH. 1 TABLET QAM, 1 TABLET NOON 1 TABLET QPM
     Route: 048
  18. HERBALS\TURMERIC [Concomitant]
     Active Substance: HERBALS\TURMERIC
     Indication: Product used for unknown indication
     Dosage: TAKE BY MOUTH DAILY
     Route: 048
  19. VITAMINS [Concomitant]
     Active Substance: VITAMINS
     Indication: Product used for unknown indication
     Dosage: VITAMIN B COMPLEX TABS?TAKE ONE TAB BY MOUTH DAILY
     Route: 048
  20. VITAMIN D [Concomitant]
     Active Substance: VITAMIN D NOS
     Indication: Product used for unknown indication
     Dosage: DOSAGE: 2000 U PO TAKE 2,000 UNITS BY MOUTH. 2 DAILY
     Route: 048
  21. TYLENOL [Concomitant]
     Active Substance: ACETAMINOPHEN
     Indication: Product used for unknown indication
     Dosage: ACETAMINOPHEN ?TAKE TWO TABS BY MOUTH EVERY 6 HOURS AS NEEDED

REACTIONS (1)
  - Osteoarthritis [Unknown]
